FAERS Safety Report 16917560 (Version 1)
Quarter: 2019Q4

REPORT INFORMATION
  Report Type: Spontaneous
  Country: US (occurrence: US)
  Receive Date: 20191015
  Receipt Date: 20191015
  Transmission Date: 20200122
  Serious: Yes (Hospitalization, Other)
  Sender: FDA-Public Use
  Company Number: US-HETERO-HET2019US01423

PATIENT
  Age: 53 Year
  Sex: Female

DRUGS (2)
  1. LITHIUM. [Suspect]
     Active Substance: LITHIUM
     Dosage: 1200 MG (DOSE INCREASED)
     Route: 065
  2. LITHIUM. [Suspect]
     Active Substance: LITHIUM
     Indication: BIPOLAR DISORDER
     Dosage: 600 MG
     Route: 065

REACTIONS (6)
  - Proteinuria [Unknown]
  - Hypercalcaemia [Recovering/Resolving]
  - Toxicity to various agents [Unknown]
  - Goitre [Unknown]
  - Diabetes insipidus [Unknown]
  - Hyperparathyroidism [Recovered/Resolved]
